FAERS Safety Report 4396350-8 (Version None)
Quarter: 2004Q3

REPORT INFORMATION
  Report Type: 
  Country: None (occurrence: None)
  Receive Date: 20040709
  Receipt Date: 20040629
  Transmission Date: 20050211
  Serious: Yes (Death)
  Sender: FDA-Public Use
  Company Number: HQWYE808530JUN04

PATIENT
  Age: 74 Year
  Sex: Female

DRUGS (2)
  1. DIAMOX [Suspect]
     Indication: INTRAOCULAR PRESSURE INCREASED
     Dosage: ^250 MG TO 750 MG/DAY^ ORAL
     Route: 048
     Dates: start: 20040617, end: 20040619
  2. SLOW-K [Concomitant]

REACTIONS (3)
  - NAUSEA [None]
  - SHOCK [None]
  - VOMITING [None]
